FAERS Safety Report 17667777 (Version 1)
Quarter: 2020Q2

REPORT INFORMATION
  Report Type: Report from Study
  Country: US (occurrence: US)
  Receive Date: 20200414
  Receipt Date: 20200414
  Transmission Date: 20200713
  Serious: Yes (Other)
  Sender: FDA-Public Use
  Company Number: US-JNJFOC-20200341922

PATIENT

DRUGS (2)
  1. REMICADE [Suspect]
     Active Substance: INFLIXIMAB
     Indication: COLITIS
  2. REMICADE [Suspect]
     Active Substance: INFLIXIMAB
     Indication: COLITIS ULCERATIVE
     Route: 042

REACTIONS (15)
  - Anastomotic stenosis [Unknown]
  - Anaphylactoid reaction [Unknown]
  - Lymphoma [Unknown]
  - Hepatic function abnormal [Unknown]
  - Post procedural complication [Unknown]
  - Embolism venous [Unknown]
  - Gastrointestinal anastomotic leak [Unknown]
  - Septic shock [Unknown]
  - Pouchitis [Unknown]
  - Arthralgia [Unknown]
  - Ileus [Unknown]
  - Small intestinal obstruction [Unknown]
  - Post procedural haemorrhage [Unknown]
  - Pelvic sepsis [Unknown]
  - Serum sickness [Unknown]
